FAERS Safety Report 24390121 (Version 1)
Quarter: 2024Q4

REPORT INFORMATION
  Report Type: Spontaneous
  Country: DE (occurrence: DE)
  Receive Date: 20241003
  Receipt Date: 20241003
  Transmission Date: 20250115
  Serious: Yes (Other)
  Sender: SANDOZ
  Company Number: DE-BRISTOL-MYERS SQUIBB COMPANY-2024-146317

PATIENT
  Age: 54 Year
  Sex: Male
  Weight: 47 kg

DRUGS (10)
  1. FLUOROURACIL [Suspect]
     Active Substance: FLUOROURACIL
     Indication: Gastric cancer
     Dosage: EVERY 2 WEEKS
     Route: 042
     Dates: start: 20240617
  2. FLUOROURACIL [Suspect]
     Active Substance: FLUOROURACIL
     Dosage: UNK
     Route: 065
  3. OXALIPLATIN [Suspect]
     Active Substance: OXALIPLATIN
     Indication: Gastric cancer
     Dosage: EVERY 2 WEEKS
     Route: 042
     Dates: start: 20240617
  4. OPDIVO [Suspect]
     Active Substance: NIVOLUMAB
     Indication: Gastric cancer
     Dosage: EVERY 2 WEEKS
     Route: 042
     Dates: start: 20240617, end: 20240729
  5. ALOXIPRIN [Concomitant]
     Active Substance: ALOXIPRIN
     Indication: Prophylaxis
     Dosage: 0.250MG
     Route: 042
     Dates: start: 20240617
  6. DEXAMETHASONE [Concomitant]
     Active Substance: DEXAMETHASONE
     Indication: Prophylaxis
     Dosage: 12.000MG
     Route: 042
     Dates: start: 20240617
  7. FOSAPREPITANT [Concomitant]
     Active Substance: FOSAPREPITANT
     Indication: Prophylaxis
     Dosage: 150.000MG
     Route: 042
     Dates: start: 20240617
  8. LOPERAMIDE [Concomitant]
     Active Substance: LOPERAMIDE
     Indication: Prophylaxis
     Dosage: 2.000MG
     Route: 048
     Dates: start: 20240617
  9. METOCLOPRAMIDE [Concomitant]
     Active Substance: METOCLOPRAMIDE
     Indication: Prophylaxis
     Dosage: 10.000MG
     Route: 048
     Dates: start: 20240617
  10. ONDANSETRON [Concomitant]
     Active Substance: ONDANSETRON
     Indication: Prophylaxis
     Dosage: 8.000MG
     Route: 048
     Dates: start: 20240617

REACTIONS (1)
  - Immune-mediated pancreatitis [Recovered/Resolved]

NARRATIVE: CASE EVENT DATE: 20240805
